FAERS Safety Report 6207972-3 (Version None)
Quarter: 2009Q2

REPORT INFORMATION
  Report Type: 
  Country: None (occurrence: None)
  Receive Date: 20090529
  Receipt Date: 20090218
  Transmission Date: 20091009
  Serious: No
  Sender: FDA-Public Use
  Company Number: A0764541A

PATIENT
  Age: 48 Year
  Sex: Female

DRUGS (3)
  1. VENTOLIN [Suspect]
     Route: 065
     Dates: start: 20090119, end: 20090121
  2. ANTIBIOTICS [Concomitant]
  3. STEROIDS [Concomitant]

REACTIONS (1)
  - HYPERVENTILATION [None]
